FAERS Safety Report 8802409 (Version 1)
Quarter: 2012Q4

REPORT INFORMATION
  Report Type: 
  Country: AU (occurrence: AU)
  Receive Date: 20120921
  Receipt Date: 20120921
  Transmission Date: 20130627
  Serious: Yes (Other)
  Sender: FDA-Public Use
  Company Number: AU-PFIZER INC-2012167104

PATIENT
  Age: 46 Year
  Sex: Male

DRUGS (1)
  1. PRISTIQ [Suspect]
     Indication: MAJOR DEPRESSION
     Dosage: 100 mg, 1x/day
     Route: 048
     Dates: start: 201205, end: 2012

REACTIONS (4)
  - Drug intolerance [Not Recovered/Not Resolved]
  - Sedation [Not Recovered/Not Resolved]
  - Akathisia [Not Recovered/Not Resolved]
  - Hepatic enzyme increased [Recovered/Resolved]
